FAERS Safety Report 6446469-2 (Version None)
Quarter: 2009Q4

REPORT INFORMATION
  Report Type: 
  Country: None (occurrence: None)
  Receive Date: 20091119
  Receipt Date: 20091116
  Transmission Date: 20100525
  Serious: Yes (Death)
  Sender: FDA-Public Use
  Company Number: PHHY2009IN50162

PATIENT
  Age: 80 Year
  Sex: Female

DRUGS (1)
  1. ASUNRA [Suspect]
     Dosage: 2 TABLETS OF  400 MG
     Route: 048

REACTIONS (1)
  - CHIKUNGUNYA VIRUS INFECTION [None]
